FAERS Safety Report 16447236 (Version 1)
Quarter: 2019Q2

REPORT INFORMATION
  Report Type: Other
  Country: IT (occurrence: IT)
  Receive Date: 20190618
  Receipt Date: 20190618
  Transmission Date: 20190711
  Serious: Yes (Hospitalization)
  Sender: FDA-Public Use
  Company Number: IT-CELLTRION INC.-2019IT021790

PATIENT

DRUGS (2)
  1. PACLITAXEL KABI [Concomitant]
     Active Substance: PACLITAXEL
     Dosage: UNK
  2. HERZUMA [Suspect]
     Active Substance: TRASTUZUMAB-PKRB
     Indication: BREAST CANCER
     Dosage: 2 MG/CYCLE
     Route: 042
     Dates: start: 20190219, end: 20190416

REACTIONS (1)
  - Angina pectoris [Recovered/Resolved]

NARRATIVE: CASE EVENT DATE: 20190503
